FAERS Safety Report 5677939-2 (Version None)
Quarter: 2008Q1

REPORT INFORMATION
  Report Type: 
  Country: None (occurrence: None)
  Receive Date: 20080319
  Receipt Date: 20050131
  Transmission Date: 20080703
  Serious: Yes (Hospitalization)
  Sender: FDA-Public Use
  Company Number: US022677

PATIENT
  Sex: Female
  Weight: 45.3597 kg

DRUGS (5)
  1. PROVIGIL [Suspect]
     Indication: FATIGUE
     Dosage: 200 MG QD ORAL
     Route: 048
     Dates: start: 20040401
  2. TRAZODONE HCL [Concomitant]
  3. WELLBUTRIN [Concomitant]
  4. ESTROGEN [Concomitant]
  5. TESTOSTERONE [Concomitant]

REACTIONS (4)
  - CARDIAC FAILURE CONGESTIVE [None]
  - CHOLECYSTECTOMY [None]
  - DRUG SCREEN POSITIVE [None]
  - THROMBOSIS [None]
